FAERS Safety Report 18818143 (Version 1)
Quarter: 2021Q1

REPORT INFORMATION
  Report Type: Spontaneous
  Country: US (occurrence: US)
  Receive Date: 20210202
  Receipt Date: 20210202
  Transmission Date: 20210419
  Serious: No
  Sender: FDA-Public Use
  Company Number: US-LEADINGPHARMA-US-2021LEASPO00026

PATIENT
  Age: 74 Year
  Sex: Female
  Weight: 155 kg

DRUGS (1)
  1. IMIPRAMINE HCL TABLETS USP [Suspect]
     Active Substance: IMIPRAMINE HYDROCHLORIDE
     Indication: PANIC DISORDER
     Dosage: CONSUMED
     Route: 065
     Dates: start: 20201222, end: 20201223

REACTIONS (1)
  - Burning sensation [Recovered/Resolved]

NARRATIVE: CASE EVENT DATE: 20201222
